FAERS Safety Report 12739738 (Version 1)
Quarter: 2016Q3

REPORT INFORMATION
  Report Type: Spontaneous
  Country: US (occurrence: US)
  Receive Date: 20160910
  Receipt Date: 20160910
  Transmission Date: 20161109
  Serious: Yes (Hospitalization)
  Sender: FDA-Public Use
  Company Number: None

PATIENT
  Age: 41 Year
  Sex: Male
  Weight: 84.1 kg

DRUGS (3)
  1. 5-FLUOROURACIL (5-FU) [Suspect]
     Active Substance: FLUOROURACIL
     Dates: end: 20160907
  2. LEUCOVORIN CALCIUM. [Suspect]
     Active Substance: LEUCOVORIN CALCIUM
     Dates: end: 20160907
  3. IRINOTECAN [Concomitant]
     Active Substance: IRINOTECAN

REACTIONS (6)
  - Dizziness [None]
  - Hyperhidrosis [None]
  - Hyponatraemia [None]
  - Condition aggravated [None]
  - Blood lactic acid increased [None]
  - Asthenia [None]

NARRATIVE: CASE EVENT DATE: 20160907
